FAERS Safety Report 8609296-3 (Version None)
Quarter: 2012Q3

REPORT INFORMATION
  Report Type: 
  Country: None (occurrence: None)
  Receive Date: 20120821
  Receipt Date: 20120808
  Transmission Date: 20120928
  Serious: No
  Sender: FDA-Public Use
  Company Number: US-ASTRAZENECA-2012SE56277

PATIENT
  Age: 61 Year
  Sex: Female

DRUGS (3)
  1. CRESTOR [Suspect]
     Route: 048
  2. ZOCOR [Concomitant]
  3. LIPITOR [Concomitant]

REACTIONS (4)
  - MALAISE [None]
  - OSTEOPOROSIS [None]
  - BONE DISORDER [None]
  - DRUG DOSE OMISSION [None]
